FAERS Safety Report 10741862 (Version 3)
Quarter: 2015Q1

REPORT INFORMATION
  Report Type: Spontaneous
  Country: US (occurrence: US)
  Receive Date: 20150127
  Receipt Date: 20150311
  Transmission Date: 20150721
  Serious: Yes (Hospitalization, Other)
  Sender: FDA-Public Use
  Company Number: US-BAYER-2015-012242

PATIENT
  Age: 37 Year
  Sex: Female
  Weight: 54 kg

DRUGS (1)
  1. MIRENA [Suspect]
     Active Substance: LEVONORGESTREL
     Indication: CONTRACEPTION
     Dosage: 20 MCG/24HR, CONT
     Route: 015
     Dates: start: 200109, end: 20020222

REACTIONS (15)
  - Emotional distress [None]
  - Depression [None]
  - Genital haemorrhage [None]
  - Uterine perforation [None]
  - Abdominal adhesions [None]
  - Injury [None]
  - Abdominal pain [None]
  - Medical device discomfort [None]
  - Anxiety [None]
  - Off label use [None]
  - Depressed mood [None]
  - Intestinal perforation [None]
  - Pelvic pain [None]
  - Scar [None]
  - Fear [None]

NARRATIVE: CASE EVENT DATE: 20020219
